FAERS Safety Report 9439293 (Version 2)
Quarter: 2015Q4

REPORT INFORMATION
  Report Type: Report from Study
  Country: US (occurrence: US)
  Receive Date: 20130804
  Receipt Date: 20151008
  Transmission Date: 20160305
  Serious: Yes (Hospitalization)
  Sender: FDA-Public Use
  Company Number: US-ROCHE-1253506

PATIENT
  Age: 30 Year
  Sex: Female

DRUGS (16)
  1. XOLAIR [Suspect]
     Active Substance: OMALIZUMAB
     Indication: ASTHMA
     Route: 058
  2. EVAMIST [Concomitant]
     Active Substance: ESTRADIOL
     Dosage: 1.53 MG/1ACT 3 SPRAYS QHS
     Route: 065
  3. RELISTOR [Concomitant]
     Active Substance: METHYLNALTREXONE BROMIDE
  4. XYZAL [Concomitant]
     Active Substance: LEVOCETIRIZINE DIHYDROCHLORIDE
     Route: 048
  5. DEXILANT [Concomitant]
     Active Substance: DEXLANSOPRAZOLE
     Route: 065
  6. XOPENEX [Concomitant]
     Active Substance: LEVALBUTEROL HYDROCHLORIDE
  7. AMITIZA [Concomitant]
     Active Substance: LUBIPROSTONE
     Dosage: DAILY
     Route: 048
  8. EPIPEN [Concomitant]
     Active Substance: EPINEPHRINE
  9. MORPHINE SULFATE. [Concomitant]
     Active Substance: MORPHINE SULFATE
     Route: 065
  10. ZYFLO [Concomitant]
     Active Substance: ZILEUTON
     Dosage: 600 MG 2 TABS BID
     Route: 048
  11. TRAZODONE [Concomitant]
     Active Substance: TRAZODONE HYDROCHLORIDE
     Dosage: NIGHTLY
     Route: 048
  12. ZOFRAN [Concomitant]
     Active Substance: ONDANSETRON HYDROCHLORIDE
     Route: 065
  13. PANCREAZE (UNITED STATES) [Concomitant]
     Dosage: Q EVERY MEAL
     Route: 065
  14. LORAZEPAM. [Concomitant]
     Active Substance: LORAZEPAM
  15. ALBUTEROL. [Concomitant]
     Active Substance: ALBUTEROL
     Indication: DYSPNOEA
     Route: 055
  16. FENTANYL. [Concomitant]
     Active Substance: FENTANYL
     Dosage: 1 PATCH EVERY 3 DAYS
     Route: 065

REACTIONS (9)
  - Ocular hyperaemia [Unknown]
  - Lacrimation increased [Unknown]
  - Catheter site infection [Recovered/Resolved]
  - Eye pruritus [Unknown]
  - Dyspnoea [Unknown]
  - Rhinitis allergic [Unknown]
  - Rhinorrhoea [Unknown]
  - Nasal congestion [Unknown]
  - Rhinitis [Unknown]

NARRATIVE: CASE EVENT DATE: 201212
